FAERS Safety Report 10464105 (Version 3)
Quarter: 2014Q4

REPORT INFORMATION
  Report Type: Report from Study
  Country: ZA (occurrence: ZA)
  Receive Date: 20140919
  Receipt Date: 20141211
  Transmission Date: 20150528
  Serious: No
  Sender: FDA-Public Use
  Company Number: PHHY2014ZA118932

PATIENT
  Age: 78 Year
  Sex: Female

DRUGS (6)
  1. CITALOPRAM [Concomitant]
     Active Substance: CITALOPRAM HYDROBROMIDE
     Indication: PRODUCT USED FOR UNKNOWN INDICATION
     Dosage: 20 MG, UNK
     Route: 065
  2. ACLASTA [Suspect]
     Active Substance: ZOLEDRONIC ACID
     Indication: OSTEOPOROSIS
     Dosage: 5 MG, UNK
     Route: 042
     Dates: start: 20090224
  3. ACLASTA [Suspect]
     Active Substance: ZOLEDRONIC ACID
     Dosage: 5 MG, UNK
     Route: 042
     Dates: start: 20140911
  4. ROHYPNOL [Concomitant]
     Active Substance: FLUNITRAZEPAM
     Indication: DEPRESSION
     Dosage: 2 DF, AT NIGHT
     Route: 065
     Dates: start: 2010
  5. TREPILINE [Concomitant]
     Active Substance: AMITRIPTYLINE
     Indication: OSTEOARTHRITIS
     Dosage: 10 MG, AT NIGHT
     Route: 065
     Dates: start: 201209
  6. VALIUM [Concomitant]
     Active Substance: DIAZEPAM
     Indication: OSTEOARTHRITIS
     Dosage: 5 MG, PRN
     Route: 065
     Dates: start: 201004

REACTIONS (8)
  - Rib fracture [Recovering/Resolving]
  - Bone cyst [Unknown]
  - Fall [Unknown]
  - Musculoskeletal pain [Unknown]
  - Tendon calcification [Unknown]
  - Vertigo [Not Recovered/Not Resolved]
  - Hiatus hernia [Unknown]
  - Hand fracture [Recovering/Resolving]

NARRATIVE: CASE EVENT DATE: 20140529
